FAERS Safety Report 9839794 (Version 1)
Quarter: 2014Q1

REPORT INFORMATION
  Report Type: Spontaneous
  Country: US (occurrence: US)
  Receive Date: 20140124
  Receipt Date: 20140124
  Transmission Date: 20141002
  Serious: No
  Sender: FDA-Public Use
  Company Number: US-BIOGENIDEC-2014BI006280

PATIENT
  Sex: Male

DRUGS (3)
  1. TECFIDERA [Suspect]
     Indication: MULTIPLE SCLEROSIS
     Dates: start: 20131101
  2. TECFIDERA [Suspect]
     Indication: MULTIPLE SCLEROSIS
  3. AVONEX [Concomitant]
     Indication: MULTIPLE SCLEROSIS
     Route: 030
     Dates: start: 19980201

REACTIONS (2)
  - Asthenia [Recovered/Resolved]
  - Disturbance in attention [Recovered/Resolved]
